FAERS Safety Report 16808169 (Version 2)
Quarter: 2019Q4

REPORT INFORMATION
  Report Type: Spontaneous
  Country: IT (occurrence: IT)
  Receive Date: 20190916
  Receipt Date: 20191004
  Transmission Date: 20200122
  Serious: Yes (Hospitalization)
  Sender: FDA-Public Use
  Company Number: IT-ROCHE-2408746

PATIENT
  Age: 78 Year
  Sex: Male

DRUGS (6)
  1. PLAUNAZIDE [Concomitant]
     Active Substance: HYDROCHLOROTHIAZIDE\OLMESARTAN MEDOXOMIL
  2. SEACOR [Concomitant]
     Active Substance: OMEGA-3 FATTY ACIDS
  3. TAPAZOLE [Concomitant]
     Active Substance: METHIMAZOLE
  4. TIKLID [Concomitant]
     Active Substance: TICLOPIDINE HYDROCHLORIDE
  5. ATEZOLIZUMAB. [Suspect]
     Active Substance: ATEZOLIZUMAB
     Indication: LUNG ADENOCARCINOMA
     Route: 042
  6. SIVASTIN [Concomitant]
     Active Substance: SIMVASTATIN

REACTIONS (2)
  - Metabolic acidosis [Unknown]
  - Diarrhoea [Unknown]

NARRATIVE: CASE EVENT DATE: 20190729
